FAERS Safety Report 9788053 (Version 1)
Quarter: 2013Q4

REPORT INFORMATION
  Report Type: Spontaneous
  Country: US (occurrence: None)
  Receive Date: 20131227
  Receipt Date: 20131227
  Transmission Date: 20140711
  Serious: Yes (Hospitalization)
  Sender: FDA-Public Use
  Company Number: None

PATIENT
  Age: 85 Year
  Sex: Female
  Weight: 67.1 kg

DRUGS (15)
  1. RIVAROXABAN [Suspect]
     Route: 048
  2. MIRAPEX [Concomitant]
  3. DUONEBS [Concomitant]
  4. PROTONIX [Concomitant]
  5. VIT D [Concomitant]
  6. SYNTHROID [Concomitant]
  7. COREG [Concomitant]
  8. ZOCOR [Concomitant]
  9. ADVAIR [Concomitant]
  10. TESSALON [Concomitant]
  11. ULTRAM [Concomitant]
  12. EFFEXOR [Concomitant]
  13. TUSSIONEX [Concomitant]
  14. FLONASE [Concomitant]
  15. XYZAL [Concomitant]

REACTIONS (2)
  - Gastrointestinal haemorrhage [None]
  - Haemorrhagic anaemia [None]
